FAERS Safety Report 19471230 (Version 1)
Quarter: 2021Q2

REPORT INFORMATION
  Report Type: Spontaneous
  Country: US (occurrence: US)
  Receive Date: 20210628
  Receipt Date: 20210628
  Transmission Date: 20210717
  Serious: No
  Sender: FDA-Public Use
  Company Number: None

PATIENT
  Sex: Female

DRUGS (14)
  1. DULOXETINE. [Concomitant]
     Active Substance: DULOXETINE
  2. REMODULIN [Concomitant]
     Active Substance: TREPROSTINIL
  3. DOXYCYC MONO [Concomitant]
     Active Substance: DOXYCYCLINE
  4. MYCOPHENOLIC [Concomitant]
     Active Substance: MYCOPHENOLIC ACID
  5. TEGRETOL [Concomitant]
     Active Substance: CARBAMAZEPINE
  6. AMBRISENTAN 10MG TAB [Suspect]
     Active Substance: AMBRISENTAN
     Indication: PULMONARY ARTERIAL HYPERTENSION
     Route: 048
     Dates: start: 20210121
  7. LEVOTHYROXIN [Concomitant]
     Active Substance: LEVOTHYROXINE
  8. TADALAFIL 20MG TAB [Suspect]
     Active Substance: TADALAFIL
     Indication: PULMONARY ARTERIAL HYPERTENSION
     Route: 048
     Dates: start: 20190501
  9. APAP/CODEINE [Concomitant]
     Active Substance: ACETAMINOPHEN\CODEINE PHOSPHATE
  10. GABAPENTIN. [Concomitant]
     Active Substance: GABAPENTIN
  11. PRIMIDONE. [Concomitant]
     Active Substance: PRIMIDONE
  12. WARFARIN [Concomitant]
     Active Substance: WARFARIN
  13. PHENOBARB [Concomitant]
     Active Substance: PHENOBARBITAL SODIUM
  14. VITAMIN D [Concomitant]
     Active Substance: VITAMIN D NOS

REACTIONS (2)
  - Vascular device infection [None]
  - Wrong technique in device usage process [None]
